FAERS Safety Report 4607874-X (Version None)
Quarter: 2005Q1

REPORT INFORMATION
  Report Type: 
  Country: None (occurrence: None)
  Receive Date: 20050310
  Receipt Date: 20050225
  Transmission Date: 20050727
  Serious: Yes (Death)
  Sender: FDA-Public Use
  Company Number: JP-2005-002707

PATIENT
  Age: 73 Year
  Sex: Female
  Weight: 52 kg

DRUGS (3)
  1. FLUDARA [Suspect]
     Indication: CHRONIC LYMPHOCYTIC LEUKAEMIA
     Dosage: 28 MG, CYCLE X 5D, INTRAVENOUS
     Route: 042
     Dates: start: 20020326, end: 20020330
  2. HALCION [Concomitant]
  3. FAMOTIDINE [Concomitant]

REACTIONS (4)
  - DRUG EFFECT DECREASED [None]
  - HISTIOCYTOSIS HAEMATOPHAGIC [None]
  - LEUKAEMIA RECURRENT [None]
  - VIRAL INFECTION [None]
